FAERS Safety Report 10176753 (Version 2)
Quarter: 2014Q2

REPORT INFORMATION
  Report Type: Report from Study
  Country: AU (occurrence: AU)
  Receive Date: 20140516
  Receipt Date: 20140516
  Transmission Date: 20141212
  Serious: Yes (Other)
  Sender: FDA-Public Use
  Company Number: AU-BRISTOL-MYERS SQUIBB COMPANY-20166054

PATIENT
  Age: 54 Year
  Sex: Female

DRUGS (7)
  1. BYETTA [Suspect]
     Indication: TYPE 2 DIABETES MELLITUS
     Dosage: ON 21-JAN-2014, DOSE INCREASED TO 10 MICROGRAM TWICE DAILY
     Route: 058
     Dates: start: 20140119
  2. METFORMIN HCL [Suspect]
  3. NOVOMIX [Suspect]
  4. PANTOPRAZOLE [Concomitant]
  5. CELEBREX [Concomitant]
  6. METHOTREXATE [Concomitant]
  7. PLAQUENIL [Concomitant]

REACTIONS (4)
  - Weight decreased [Recovering/Resolving]
  - Decreased appetite [Not Recovered/Not Resolved]
  - Nausea [Recovering/Resolving]
  - Blood glucose fluctuation [Recovering/Resolving]
